FAERS Safety Report 16338621 (Version 1)
Quarter: 2020Q3

REPORT INFORMATION
  Report Type: Report from Study
  Country: SG (occurrence: SG)
  Receive Date: 20190521
  Receipt Date: 20190521
  Transmission Date: 20201104
  Serious: Yes (Hospitalization)
  Sender: FDA-Public Use
  Company Number: SG-ASTRAZENECA-2019SE60215

PATIENT
  Age: 65 Year
  Sex: Male
  Weight: 73 kg

DRUGS (2)
  1. MEDI4736 [Suspect]
     Active Substance: DURVALUMAB
     Indication: OESOPHAGEAL ADENOCARCINOMA
     Route: 042
     Dates: start: 20181227, end: 20190322
  2. TREMELIMUMAB. [Suspect]
     Active Substance: TREMELIMUMAB
     Indication: OESOPHAGEAL ADENOCARCINOMA
     Route: 042
     Dates: start: 20181227, end: 20190322

REACTIONS (1)
  - Pancreatitis [Recovered/Resolved]

NARRATIVE: CASE EVENT DATE: 20190418
